FAERS Safety Report 4473183-5 (Version None)
Quarter: 2004Q4

REPORT INFORMATION
  Report Type: 
  Country: None (occurrence: None)
  Receive Date: 20041007
  Receipt Date: 20041007
  Transmission Date: 20050328
  Serious: No
  Sender: FDA-Public Use
  Company Number: None

PATIENT

DRUGS (2)
  1. B D U-100 INSULIN SYRINGE [Suspect]
     Dosage: TROCHE /LOZENGE
  2. BD 1 ML 25-GUAGE SYRINGE [Suspect]
     Dosage: TROCHE /LOZENGE

REACTIONS (2)
  - ACCIDENTAL OVERDOSE [None]
  - MEDICATION ERROR [None]
